FAERS Safety Report 23093354 (Version 3)
Quarter: 2023Q4

REPORT INFORMATION
  Report Type: Spontaneous
  Country: PL (occurrence: PL)
  Receive Date: 20231022
  Receipt Date: 20231221
  Transmission Date: 20240109
  Serious: Yes (Death, Hospitalization, Other)
  Sender: FDA-Public Use
  Company Number: PL-SANDOZ-SDZ2023PL004195

PATIENT
  Age: 64 Year
  Sex: Female

DRUGS (10)
  1. CHONDROITIN SULFATE (BOVINE) [Concomitant]
     Active Substance: CHONDROITIN SULFATE (BOVINE)
     Indication: Product used for unknown indication
     Route: 065
  2. DIPHENHYDRAMINE [Interacting]
     Active Substance: DIPHENHYDRAMINE
     Indication: Product used for unknown indication
     Route: 065
  3. METOPROLOL [Interacting]
     Active Substance: METOPROLOL
     Indication: Osteoarthritis
     Dosage: 50 MG
     Route: 065
  4. METOPROLOL [Interacting]
     Active Substance: METOPROLOL
     Indication: Atrial fibrillation
  5. OMEPRAZOLE [Interacting]
     Active Substance: OMEPRAZOLE
     Indication: Product used for unknown indication
     Dosage: 40 MG, QD (40 MG/24 H)
     Route: 065
  6. ACETAMINOPHEN [Interacting]
     Active Substance: ACETAMINOPHEN
     Indication: Osteoarthritis
     Dosage: 1000 MG, BID (1,000 MG 2 X/24 H)
     Route: 065
  7. PROPAFENONE [Interacting]
     Active Substance: PROPAFENONE
     Indication: Atrial fibrillation
     Dosage: 150 MG, BID
     Route: 065
  8. PROPAFENONE [Interacting]
     Active Substance: PROPAFENONE
     Indication: Osteoarthritis
  9. WARFARIN [Interacting]
     Active Substance: WARFARIN
     Indication: Osteoarthritis
     Dosage: VARIABLE DOSE
     Route: 065
  10. WARFARIN [Interacting]
     Active Substance: WARFARIN
     Indication: Atrial fibrillation

REACTIONS (6)
  - Drug interaction [Fatal]
  - Product prescribing issue [Fatal]
  - Subarachnoid haemorrhage [Fatal]
  - Abdominal pain upper [Unknown]
  - Product use in unapproved indication [Unknown]
  - Product prescribing error [Unknown]
